FAERS Safety Report 17603184 (Version 2)
Quarter: 2020Q4

REPORT INFORMATION
  Report Type: Report from Study
  Country: GB (occurrence: GB)
  Receive Date: 20200331
  Receipt Date: 20201109
  Transmission Date: 20210113
  Serious: Yes (Other)
  Sender: FDA-Public Use
  Company Number: NVSC2020GB087714

PATIENT
  Sex: Male

DRUGS (1)
  1. HYRIMOZ [Suspect]
     Active Substance: ADALIMUMAB-ADAZ
     Indication: PSORIATIC ARTHROPATHY
     Dosage: 40 MG (FORTNIGHTLY)
     Route: 058
     Dates: start: 20190723

REACTIONS (4)
  - Pain [Unknown]
  - Psoriatic arthropathy [Unknown]
  - Malaise [Unknown]
  - Product dose omission issue [Unknown]
